FAERS Safety Report 15310142 (Version 8)
Quarter: 2021Q2

REPORT INFORMATION
  Report Type: Spontaneous
  Country: US (occurrence: US)
  Receive Date: 20180823
  Receipt Date: 20210520
  Transmission Date: 20210716
  Serious: No
  Sender: FDA-Public Use
  Company Number: US-PFIZER INC-2018334623

PATIENT
  Age: 64 Year
  Sex: Male
  Weight: 113 kg

DRUGS (10)
  1. FLECTOR [Suspect]
     Active Substance: DICLOFENAC EPOLAMINE
     Indication: NERVE INJURY
  2. FLECTOR [Suspect]
     Active Substance: DICLOFENAC EPOLAMINE
     Indication: BACK PAIN
     Dosage: UNK, AS NEEDED (1 PATCH BY TRANSDERMAL ROUTE BID,PRN/ CUT PATCHES IN HALF)
     Route: 062
     Dates: start: 201707
  3. FLECTOR [Suspect]
     Active Substance: DICLOFENAC EPOLAMINE
     Indication: INTERVERTEBRAL DISC DEGENERATION
  4. FLECTOR [Suspect]
     Active Substance: DICLOFENAC EPOLAMINE
     Indication: SPINAL FUSION SURGERY
  5. FLECTOR [Suspect]
     Active Substance: DICLOFENAC EPOLAMINE
     Indication: ARTHRALGIA
     Dosage: UNK, AS NEEDED, [GO EVERY OTHER DAY BUT IT WAS AN AS NEEDED THING]
     Route: 061
  6. FLECTOR [Suspect]
     Active Substance: DICLOFENAC EPOLAMINE
     Indication: SACROILIITIS
  7. ACETAMINOPHEN. [Concomitant]
     Active Substance: ACETAMINOPHEN
     Indication: PAIN MANAGEMENT
     Dosage: UNK UNK, 3X/DAY
  8. FLECTOR [Suspect]
     Active Substance: DICLOFENAC EPOLAMINE
     Indication: SPINAL OSTEOARTHRITIS
  9. FLECTOR [Suspect]
     Active Substance: DICLOFENAC EPOLAMINE
     Indication: PAIN
  10. TRAMADOL. [Concomitant]
     Active Substance: TRAMADOL
     Indication: PAIN MANAGEMENT
     Dosage: 50 MG, 3X/DAY

REACTIONS (6)
  - Wrong technique in product usage process [Unknown]
  - Dizziness [Recovered/Resolved]
  - Hypertension [Unknown]
  - Sedation [Unknown]
  - Blood pressure decreased [Recovered/Resolved]
  - Nausea [Unknown]
